FAERS Safety Report 5085460-8 (Version None)
Quarter: 2006Q3

REPORT INFORMATION
  Report Type: 
  Country: None (occurrence: None)
  Receive Date: 20060816
  Receipt Date: 20060808
  Transmission Date: 20061208
  Serious: Yes (Disabling)
  Sender: FDA-Public Use
  Company Number: CH-2006-022289

PATIENT
  Sex: Female

DRUGS (1)
  1. YASMIN [Suspect]
     Indication: CONTRACEPTION
     Dosage: 1 TAB(S), ORAL
     Route: 048
     Dates: end: 20060807

REACTIONS (2)
  - CONDITION AGGRAVATED [None]
  - HEARING IMPAIRED [None]
